FAERS Safety Report 10342385 (Version 1)
Quarter: 2014Q3

REPORT INFORMATION
  Report Type: Spontaneous
  Country: US (occurrence: US)
  Receive Date: 20140725
  Receipt Date: 20140725
  Transmission Date: 20150326
  Serious: No
  Sender: FDA-Public Use
  Company Number: US-GLAXOSMITHKLINE-A1059051A

PATIENT
  Age: 29 Year
  Sex: Male

DRUGS (3)
  1. LAMOTRIGINE. [Suspect]
     Active Substance: LAMOTRIGINE
     Indication: ANXIETY
     Dosage: 50MG PER DAY
     Route: 048
     Dates: start: 201311
  2. LAMICTAL [Suspect]
     Active Substance: LAMOTRIGINE
     Indication: ANXIETY
     Dosage: 50MG PER DAY
     Route: 048
     Dates: start: 201308, end: 201311
  3. SERTRALINE [Concomitant]
     Active Substance: SERTRALINE HYDROCHLORIDE

REACTIONS (2)
  - Drug ineffective [Unknown]
  - Somnolence [Recovering/Resolving]

NARRATIVE: CASE EVENT DATE: 201312
